FAERS Safety Report 12389666 (Version 2)
Quarter: 2016Q2

REPORT INFORMATION
  Report Type: Report from Study
  Country: BR (occurrence: BR)
  Receive Date: 20160520
  Receipt Date: 20160527
  Transmission Date: 20160815
  Serious: Yes (Other)
  Sender: FDA-Public Use
  Company Number: BR-009507513-1605BRA006946

PATIENT
  Sex: Male
  Weight: 90 kg

DRUGS (5)
  1. ZETIA [Suspect]
     Active Substance: EZETIMIBE
     Indication: DIABETES MELLITUS
     Dosage: 1 TABLET (10 MG), DAILY
     Route: 048
  2. LOSARTAN POTASSIUM. [Concomitant]
     Active Substance: LOSARTAN POTASSIUM
     Indication: HYPERTENSION
     Dosage: 50 MG 2 TABLETS DAILY
     Route: 048
  3. LIVALO [Concomitant]
     Active Substance: PITAVASTATIN CALCIUM
     Indication: DIABETES MELLITUS
     Dosage: 2 MG 1 TABLET DAILY
     Route: 048
  4. HYDROCHLOROTHIAZIDE. [Concomitant]
     Active Substance: HYDROCHLOROTHIAZIDE
     Indication: HYPERTENSION
     Dosage: 25 MG 1 TABLET DAILY
     Route: 048
  5. LIPLESS [Concomitant]
     Active Substance: CIPROFIBRATE
     Indication: DIABETES MELLITUS
     Dosage: 100 MG 1 TABLET DAILY
     Route: 048

REACTIONS (2)
  - Renal failure [Not Recovered/Not Resolved]
  - Product use issue [Unknown]

NARRATIVE: CASE EVENT DATE: 2011
